FAERS Safety Report 7543023-6 (Version None)
Quarter: 2011Q2

REPORT INFORMATION
  Report Type: 
  Country: None (occurrence: None)
  Receive Date: 20110613
  Receipt Date: 20110606
  Transmission Date: 20111010
  Serious: Yes (Other)
  Sender: FDA-Public Use
  Company Number: PHHY2010JP61154

PATIENT
  Sex: Female
  Weight: 45 kg

DRUGS (4)
  1. ENTACAPONE [Suspect]
     Indication: DRUG EFFECT DECREASED
     Dosage: 300 MG, QD
     Route: 048
     Dates: start: 20080808
  2. ALMARL [Concomitant]
     Dosage: 15 MG
     Route: 048
     Dates: start: 19970726
  3. CARBIDOPA + LEVODOPA [Concomitant]
     Indication: PARKINSON'S DISEASE
     Dosage: 450 MG, 3 DOSES PER DAY
     Dates: start: 19960101
  4. PRAMIPEXOLE DIHYCHLLORIDE [Concomitant]
     Indication: PARKINSON'S DISEASE
     Dosage: 2 MG
     Route: 048
     Dates: start: 20070803

REACTIONS (2)
  - SENSORY DISTURBANCE [None]
  - HALLUCINATION [None]
